FAERS Safety Report 5959770-3 (Version None)
Quarter: 2008Q4

REPORT INFORMATION
  Report Type: 
  Country: None (occurrence: None)
  Receive Date: 20081120
  Receipt Date: 20081118
  Transmission Date: 20090506
  Serious: Yes (Other)
  Sender: FDA-Public Use
  Company Number: A0757318A

PATIENT
  Age: 40 Year
  Sex: Female

DRUGS (5)
  1. NICORETTE [Suspect]
     Indication: SMOKING CESSATION THERAPY
     Dosage: 50MG PER DAY
     Route: 002
  2. GRANDPA [Concomitant]
     Indication: HEADACHE
     Dosage: 1PACK PER DAY
     Route: 048
  3. WINE [Concomitant]
     Dosage: 1Z PER DAY
  4. VITAMIN D [Concomitant]
  5. ASCORBIC ACID [Concomitant]

REACTIONS (4)
  - DEPENDENCE [None]
  - INSOMNIA [None]
  - INTENTIONAL DRUG MISUSE [None]
  - OVERDOSE [None]
